FAERS Safety Report 5395751-9 (Version None)
Quarter: 2007Q3

REPORT INFORMATION
  Report Type: 
  Country: None (occurrence: None)
  Receive Date: 20070724
  Receipt Date: 20070712
  Transmission Date: 20080115
  Serious: Yes (Hospitalization, Other)
  Sender: FDA-Public Use
  Company Number: US-PFIZER INC-2006071734

PATIENT
  Sex: Female
  Weight: 73.5 kg

DRUGS (8)
  1. CELEBREX [Suspect]
     Indication: PAIN
     Route: 048
     Dates: start: 20000411, end: 20040930
  2. CELEBREX [Suspect]
     Indication: OSTEOARTHRITIS
  3. BEXTRA [Suspect]
     Indication: PAIN
     Route: 048
     Dates: start: 20040812, end: 20050120
  4. BEXTRA [Suspect]
     Indication: OSTEOARTHRITIS
  5. VIOXX [Suspect]
     Indication: OSTEOARTHRITIS
     Dates: start: 20010201, end: 20040930
  6. VIOXX [Suspect]
     Indication: PAIN
  7. ASPIRIN [Concomitant]
  8. DIGOXIN [Concomitant]

REACTIONS (3)
  - CARDIAC DISORDER [None]
  - CEREBROVASCULAR ACCIDENT [None]
  - TRANSIENT ISCHAEMIC ATTACK [None]
